FAERS Safety Report 6389263-3 (Version None)
Quarter: 2009Q4

REPORT INFORMATION
  Report Type: 
  Country: None (occurrence: None)
  Receive Date: 20091006
  Receipt Date: 20090928
  Transmission Date: 20100525
  Serious: Yes (Death, Hospitalization, Other)
  Sender: FDA-Public Use
  Company Number: PHHY2009BR41766

PATIENT
  Sex: Female

DRUGS (7)
  1. EXELON [Suspect]
     Indication: DEMENTIA ALZHEIMER'S TYPE
     Dosage: 9MG/5CM2 1 PATCH PER DAY IN MORNING
     Route: 062
  2. EXELON [Suspect]
     Dosage: 18MG/10CM2
     Route: 062
  3. EXELON [Suspect]
     Dosage: 9MG/5CM2
     Route: 062
  4. MIRTAZAPINE [Concomitant]
     Indication: SLEEP DISORDER
     Dosage: UNK
     Route: 048
  5. CAPTOPRIL [Concomitant]
     Indication: BLOOD PRESSURE ABNORMAL
     Dosage: 0.5 TABLET IN MORNING
     Route: 048
  6. SOMALGIN [Concomitant]
     Indication: PERIPHERAL VASCULAR DISORDER
     Dosage: UNK
     Route: 048
  7. ALDACTONE [Concomitant]
     Indication: BLOOD PRESSURE ABNORMAL
     Dosage: UNK
     Route: 048

REACTIONS (14)
  - ABASIA [None]
  - APPLICATION SITE ERYTHEMA [None]
  - APPLICATION SITE INFLAMMATION [None]
  - APPLICATION SITE PRURITUS [None]
  - BRONCHOPNEUMONIA [None]
  - CARDIAC ARREST [None]
  - DEMENTIA ALZHEIMER'S TYPE [None]
  - GASTROINTESTINAL TUBE INSERTION [None]
  - GENERAL PHYSICAL HEALTH DETERIORATION [None]
  - SCREAMING [None]
  - SOMNOLENCE [None]
  - TRACHEOBRONCHITIS [None]
  - VEIN DISORDER [None]
  - VENTRICULAR FIBRILLATION [None]
